FAERS Safety Report 8556854-0 (Version None)
Quarter: 2012Q3

REPORT INFORMATION
  Report Type: 
  Country: None (occurrence: None)
  Receive Date: 20120726
  Receipt Date: 20120726
  Transmission Date: 20120928
  Serious: Yes (Other)
  Sender: FDA-Public Use
  Company Number: None

PATIENT
  Sex: Female
  Weight: 55.5 kg

DRUGS (3)
  1. VYTORIN [Concomitant]
  2. ALENDRONATE SODIUM [Concomitant]
  3. CIPROFLOXACIN [Suspect]
     Indication: URINARY TRACT INFECTION
     Dosage: 500MG BID ORAL
     Route: 048
     Dates: start: 20120611, end: 20120614

REACTIONS (2)
  - PANCREATITIS [None]
  - BACK PAIN [None]
